FAERS Safety Report 14183590 (Version 3)
Quarter: 2019Q2

REPORT INFORMATION
  Report Type: Spontaneous
  Country: DK (occurrence: DK)
  Receive Date: 20171113
  Receipt Date: 20190426
  Transmission Date: 20190711
  Serious: Yes (Hospitalization)
  Sender: FDA-Public Use
  Company Number: DK-ROCHE-2019847

PATIENT
  Age: 55 Year
  Sex: Female

DRUGS (2)
  1. BONDRONAT [IBANDRONATE SODIUM] [Suspect]
     Active Substance: IBANDRONATE SODIUM
     Indication: PATHOLOGICAL FRACTURE
     Dosage: FILM COATED TABLET
     Route: 048
     Dates: start: 20131227, end: 20170314
  2. ZOMETA [Suspect]
     Active Substance: ZOLEDRONIC ACID
     Indication: PRODUCT USED FOR UNKNOWN INDICATION
     Route: 042
     Dates: start: 20130930, end: 20131203

REACTIONS (5)
  - Jaw fistula [Unknown]
  - Osteonecrosis of jaw [Recovered/Resolved]
  - Pain in jaw [Unknown]
  - Jaw operation [Recovered/Resolved]
  - Swelling face [Unknown]

NARRATIVE: CASE EVENT DATE: 201701
